FAERS Safety Report 15644226 (Version 1)
Quarter: 2018Q4

REPORT INFORMATION
  Report Type: Spontaneous
  Country: US (occurrence: US)
  Receive Date: 20181115
  Receipt Date: 20181115
  Transmission Date: 20190205
  Serious: Yes (Life-Threatening, Hospitalization, Other)
  Sender: FDA-Public Use
  Company Number: None

PATIENT
  Age: 49 Year
  Sex: Female
  Weight: 83.7 kg

DRUGS (3)
  1. ITTB PUMP [Concomitant]
  2. GABLOFEN [Suspect]
     Active Substance: BACLOFEN
     Indication: PARALYSIS
     Dates: start: 20180523
  3. GABLOFEN [Suspect]
     Active Substance: BACLOFEN
     Indication: QUADRIPLEGIA
     Dates: start: 20180523

REACTIONS (4)
  - Muscle spasticity [None]
  - Pain [None]
  - Incorrect drug administration rate [None]
  - Withdrawal syndrome [None]

NARRATIVE: CASE EVENT DATE: 20180910
